FAERS Safety Report 15667797 (Version 3)
Quarter: 2019Q1

REPORT INFORMATION
  Report Type: Spontaneous
  Country: US (occurrence: US)
  Receive Date: 20181128
  Receipt Date: 20190204
  Transmission Date: 20190417
  Serious: Yes (Hospitalization)
  Sender: FDA-Public Use
  Company Number: US-GEHC-2018CSU004557

PATIENT
  Age: 79 Year
  Sex: Male
  Weight: 83.9 kg

DRUGS (2)
  1. VISIPAQUE [Suspect]
     Active Substance: IODIXANOL
     Indication: DIAGNOSTIC PROCEDURE
     Dosage: 120 ML, SINGLE
     Route: 042
     Dates: start: 20181017, end: 20181017
  2. VISIPAQUE [Suspect]
     Active Substance: IODIXANOL
     Indication: COLON CANCER

REACTIONS (1)
  - Anaphylactic reaction [Recovered/Resolved]

NARRATIVE: CASE EVENT DATE: 20181017
